FAERS Safety Report 4753282-0 (Version None)
Quarter: 2005Q3

REPORT INFORMATION
  Report Type: 
  Country: None (occurrence: None)
  Receive Date: 20050824
  Receipt Date: 20050811
  Transmission Date: 20060218
  Serious: Yes (Other)
  Sender: FDA-Public Use
  Company Number: 2005114470

PATIENT
  Sex: Female
  Weight: 48.9885 kg

DRUGS (7)
  1. DILANTIN KAPSEAL [Suspect]
     Indication: GRAND MAL CONVULSION
     Dosage: 300 MG (100 MG, 1 IN 1 D), ORAL
     Route: 048
     Dates: start: 19750101
  2. CAFERGOT [Concomitant]
  3. AMITRIPTYLINE HCL [Concomitant]
  4. RESTORIL [Concomitant]
  5. VALIUM [Concomitant]
  6. FIORINAL [Concomitant]
  7. VITAMIN E [Concomitant]

REACTIONS (6)
  - BODY HEIGHT DECREASED [None]
  - BREAST CANCER [None]
  - COAGULOPATHY [None]
  - EPISTAXIS [None]
  - PLATELET DISORDER [None]
  - PULMONARY SARCOIDOSIS [None]
